FAERS Safety Report 9505564 (Version 1)
Quarter: 2013Q1

REPORT INFORMATION
  Report Type: Spontaneous
  Country: US (occurrence: None)
  Receive Date: 20130220
  Receipt Date: 20130220
  Transmission Date: 20140127
  Serious: No
  Sender: FDA-Public Use
  Company Number: 1000041619

PATIENT
  Age: 85 Year
  Sex: Male

DRUGS (7)
  1. VIIBYRD [Suspect]
     Indication: DEPRESSION
     Dosage: 10 MG (10 MG, 1 IN 1 D), ORAL
     Route: 048
     Dates: start: 20130107
  2. METOPROLOL (METOPROLOL) [Suspect]
     Indication: HYPERTENSION
  3. FLOVENT (FLUTICASONE PROIONATE) (FLUTICASONE PROPIONATE) [Concomitant]
  4. LEVOCETIRIZINE (LEVOCETIRIZINE) (LEVOCETIRIZINE) [Concomitant]
  5. LOSARTAN (LOSARTAN) (LOSARTAN) [Concomitant]
  6. OMEPRAZOLE (OMEPRAZOLE) (OMEPRAZOLE) [Concomitant]
  7. FINASTERIDE (FINASTERIDE) (FINASTERIDE) [Concomitant]

REACTIONS (3)
  - Nervousness [None]
  - Anxiety [None]
  - Psychomotor hyperactivity [None]
